FAERS Safety Report 9713666 (Version 2)
Quarter: 2013Q4

REPORT INFORMATION
  Report Type: Spontaneous
  Country: FR (occurrence: FR)
  Receive Date: 20131126
  Receipt Date: 20131126
  Transmission Date: 20140711
  Serious: Yes (Death, Life-Threatening, Hospitalization)
  Sender: FDA-Public Use
  Company Number: FR-ELI_LILLY_AND_COMPANY-FR201307006288

PATIENT
  Age: 55 Year
  Sex: Male

DRUGS (4)
  1. ALIMTA [Suspect]
     Dosage: 500 MG, UNKNOWN
     Route: 042
     Dates: start: 20120727, end: 20130117
  2. CISPLATINE [Concomitant]
     Dosage: UNK
     Dates: start: 20120727, end: 20121005
  3. ZOMETA [Suspect]
     Dosage: UNK
     Route: 042
     Dates: end: 201305
  4. INNOHEP [Concomitant]

REACTIONS (4)
  - Death [Fatal]
  - Renal failure acute [Not Recovered/Not Resolved]
  - Dyspnoea [Unknown]
  - Cognitive disorder [Unknown]
